FAERS Safety Report 8075723-6 (Version None)
Quarter: 2012Q1

REPORT INFORMATION
  Report Type: 
  Country: None (occurrence: None)
  Receive Date: 20120127
  Receipt Date: 20120119
  Transmission Date: 20120608
  Serious: Yes (Other)
  Sender: FDA-Public Use
  Company Number: FR-PFIZER INC-2012016595

PATIENT

DRUGS (4)
  1. EPIRUBICIN HYDROCHLORIDE [Suspect]
     Indication: BREAST CANCER
     Dosage: 75 MG/M2, UNK
     Route: 064
  2. VINORELBINE [Suspect]
     Indication: BREAST CANCER
     Dosage: 100% DOSE, 21-DAY-CYCLE
     Route: 064
  3. FLUOROURACIL [Suspect]
     Indication: BREAST CANCER
     Dosage: 100% DOSE, 21-DAY-CYCLE
     Route: 064
  4. CYCLOPHOSPHAMIDE [Suspect]
     Indication: BREAST CANCER
     Dosage: 1200 MG/M2, UNK
     Route: 064

REACTIONS (2)
  - ANAEMIA NEONATAL [None]
  - MATERNAL EXPOSURE TIMING UNSPECIFIED [None]
